FAERS Safety Report 5120095-X (Version None)
Quarter: 2006Q4

REPORT INFORMATION
  Report Type: 
  Country: None (occurrence: None)
  Receive Date: 20061004
  Receipt Date: 20040910
  Transmission Date: 20070319
  Serious: Yes (Hospitalization)
  Sender: FDA-Public Use
  Company Number: FR-SP-2004-02991

PATIENT
  Age: 78 Year
  Sex: Male

DRUGS (3)
  1. IMMUCYST [Suspect]
     Indication: BLADDER CANCER
     Route: 043
     Dates: start: 20040715
  2. IMMUCYST [Suspect]
     Route: 043
     Dates: start: 20040715
  3. IMMUCYST [Suspect]
     Route: 043
     Dates: start: 20040715

REACTIONS (16)
  - ANOREXIA [None]
  - BOVINE TUBERCULOSIS [None]
  - CHILLS [None]
  - CHOLESTASIS [None]
  - GENERAL PHYSICAL HEALTH DETERIORATION [None]
  - GRANULOMATOUS LIVER DISEASE [None]
  - HEPATIC ENZYME INCREASED [None]
  - HEPATOSPLENOMEGALY [None]
  - HISTIOCYTOSIS HAEMATOPHAGIC [None]
  - HYPERTRIGLYCERIDAEMIA [None]
  - JAUNDICE [None]
  - PANCYTOPENIA [None]
  - PYREXIA [None]
  - RENAL FAILURE [None]
  - SERUM FERRITIN INCREASED [None]
  - WEIGHT DECREASED [None]
